FAERS Safety Report 6594235-X (Version None)
Quarter: 2010Q1

REPORT INFORMATION
  Report Type: 
  Country: None (occurrence: None)
  Receive Date: 20100222
  Receipt Date: 20100213
  Transmission Date: 20100710
  Serious: Yes (Hospitalization)
  Sender: FDA-Public Use
  Company Number: JP-MERCK-1002USA02849

PATIENT
  Age: 70 Year
  Sex: Male

DRUGS (8)
  1. EMEND [Suspect]
     Indication: PROPHYLAXIS OF NAUSEA AND VOMITING
     Route: 048
     Dates: start: 20100127, end: 20100127
  2. EMEND [Suspect]
     Route: 048
     Dates: start: 20100128, end: 20100131
  3. EMEND [Suspect]
     Route: 048
     Dates: start: 20100127, end: 20100127
  4. EMEND [Suspect]
     Route: 048
     Dates: start: 20100128, end: 20100131
  5. DECADRON [Concomitant]
     Route: 048
  6. ALIMTA [Suspect]
     Indication: LUNG NEOPLASM MALIGNANT
     Route: 041
     Dates: start: 20100127, end: 20100127
  7. GENINAX [Concomitant]
     Route: 065
  8. MEVALOTIN [Concomitant]
     Route: 065

REACTIONS (1)
  - INTERSTITIAL LUNG DISEASE [None]
